FAERS Safety Report 15720872 (Version 2)
Quarter: 2018Q4

REPORT INFORMATION
  Report Type: Spontaneous
  Country: US (occurrence: US)
  Receive Date: 20181214
  Receipt Date: 20181218
  Transmission Date: 20190205
  Serious: Yes (Hospitalization)
  Sender: FDA-Public Use
  Company Number: US-JNJFOC-20181209630

PATIENT
  Age: 15 Month
  Sex: Male
  Weight: 10.43 kg

DRUGS (2)
  1. AVEENO BABY CALMING COMFORT [Suspect]
     Active Substance: DIMETHICONE
     Indication: PRODUCT USED FOR UNKNOWN INDICATION
     Dosage: DOSAGE: TWO QUARTER SIZES, ONE TIME
     Route: 061
     Dates: start: 20181204
  2. AVEENO BABY CALMING COMFORT [Suspect]
     Active Substance: DIMETHICONE
     Indication: REMOVAL OF INERT MATTER FROM SKIN OR SUBCUTANEOUS TISSUE
     Dosage: DOSAGE: QUARTER SIZE ONCE
     Route: 061
     Dates: start: 20181204

REACTIONS (2)
  - Application site erythema [Not Recovered/Not Resolved]
  - Application site urticaria [Recovered/Resolved]

NARRATIVE: CASE EVENT DATE: 20181204
